FAERS Safety Report 24751812 (Version 2)
Quarter: 2025Q1

REPORT INFORMATION
  Report Type: Report from Study
  Country: IN (occurrence: IN)
  Receive Date: 20241219
  Receipt Date: 20250107
  Transmission Date: 20250409
  Serious: Yes (Hospitalization, Other)
  Sender: ROCHE
  Company Number: IN-ROCHE-10000153955

PATIENT
  Age: 61 Year
  Sex: Female
  Weight: 57.2 kg

DRUGS (1)
  1. KADCYLA [Suspect]
     Active Substance: ADO-TRASTUZUMAB EMTANSINE
     Indication: Breast cancer
     Route: 042
     Dates: start: 20220509

REACTIONS (9)
  - Heart rate increased [Unknown]
  - Blood alkaline phosphatase increased [Unknown]
  - Dental operation [Unknown]
  - Osteosclerosis [Unknown]
  - Pulmonary calcification [Unknown]
  - Thyroid mass [Unknown]
  - Tricuspid valve incompetence [Unknown]
  - Mitral valve sclerosis [Unknown]
  - Aortic valve sclerosis [Unknown]

NARRATIVE: CASE EVENT DATE: 20231128
